FAERS Safety Report 7789592-2 (Version None)
Quarter: 2011Q3

REPORT INFORMATION
  Report Type: 
  Country: None (occurrence: None)
  Receive Date: 20110930
  Receipt Date: 20110920
  Transmission Date: 20111222
  Serious: Yes (Hospitalization, Disabling)
  Sender: FDA-Public Use
  Company Number: US-PFIZER INC-2011224287

PATIENT
  Age: 65 Year
  Sex: Female

DRUGS (1)
  1. PRISTIQ [Suspect]
     Indication: DEPRESSION
     Dosage: 100 MG, DAILY
     Route: 048
     Dates: end: 20110901

REACTIONS (10)
  - IRRITABILITY [None]
  - RESTLESSNESS [None]
  - CONFUSIONAL STATE [None]
  - MIDDLE INSOMNIA [None]
  - FALL [None]
  - AMNESIA [None]
  - BALANCE DISORDER [None]
  - SPEECH DISORDER [None]
  - AGITATION [None]
  - HEAD INJURY [None]
